FAERS Safety Report 24993982 (Version 1)
Quarter: 2025Q1

REPORT INFORMATION
  Report Type: Report from Study
  Country: US (occurrence: US)
  Receive Date: 20250221
  Receipt Date: 20250221
  Transmission Date: 20250409
  Serious: Yes (Other)
  Sender: ABBVIE
  Company Number: US-ABBVIE-6139451

PATIENT
  Sex: Male

DRUGS (1)
  1. IMBRUVICA [Suspect]
     Active Substance: IBRUTINIB
     Indication: Product used for unknown indication
     Route: 048

REACTIONS (10)
  - Haemolytic anaemia [Unknown]
  - Atrial fibrillation [Unknown]
  - Tachycardia [Unknown]
  - Chronic kidney disease [Unknown]
  - Hepatic cirrhosis [Unknown]
  - Impaired gastric emptying [Unknown]
  - Acquired C1 inhibitor deficiency [Unknown]
  - Pain [Unknown]
  - Long QT syndrome [Unknown]
  - Thrombosis [Unknown]
